FAERS Safety Report 7049181-4 (Version None)
Quarter: 2010Q4

REPORT INFORMATION
  Report Type: 
  Country: None (occurrence: None)
  Receive Date: 20101012
  Receipt Date: 20101004
  Transmission Date: 20110411
  Serious: Yes (Hospitalization)
  Sender: FDA-Public Use
  Company Number: 019802

PATIENT
  Sex: Male

DRUGS (7)
  1. NEUPRO [Suspect]
     Dosage: (10 MG QD TRANSDERMAL)
     Route: 062
     Dates: end: 20100923
  2. AMIODARONE (AMIODARONE) [Suspect]
     Indication: ARRHYTHMIA
     Dosage: (400 MG TID ORAL) ; (200 MG QD ORAL)
     Route: 048
  3. DIGOXIN [Concomitant]
  4. FUROSEMIDE [Concomitant]
  5. GLYCERYL TRINITRATE [Concomitant]
  6. MADOPAR /00349201/ [Concomitant]
  7. WARFARIN SODIUM [Concomitant]

REACTIONS (2)
  - DELUSION [None]
  - HALLUCINATION [None]
